FAERS Safety Report 9478220 (Version 1)
Quarter: 2013Q3

REPORT INFORMATION
  Report Type: Spontaneous
  Country: SG (occurrence: SG)
  Receive Date: 20130827
  Receipt Date: 20130827
  Transmission Date: 20140515
  Serious: Yes (Other)
  Sender: FDA-Public Use
  Company Number: SG-PFIZER INC-2013246210

PATIENT
  Sex: Male

DRUGS (1)
  1. PHENYTOIN [Suspect]
     Dosage: UNK

REACTIONS (1)
  - Pruritus [Unknown]
